FAERS Safety Report 9639347 (Version 1)
Quarter: 2013Q4

REPORT INFORMATION
  Report Type: Spontaneous
  Country: US (occurrence: None)
  Receive Date: 20131021
  Receipt Date: 20131021
  Transmission Date: 20140711
  Serious: Yes (Life-Threatening, Hospitalization)
  Sender: FDA-Public Use
  Company Number: SYM-2013-11594

PATIENT
  Age: 11 Year
  Sex: Male

DRUGS (12)
  1. ACYCLOVIR (ACICLOVIR) (ACICLOVIR) [Suspect]
     Indication: PRODUCT USED FOR UNKNOWN INDICATION
  2. DICLOFENAC [Suspect]
     Indication: PRODUCT USED FOR UNKNOWN INDICATION
     Route: 042
  3. IBUPROFEN [Suspect]
     Indication: BODY TEMPERATURE INCREASED
     Route: 048
     Dates: start: 20120927, end: 20120927
  4. NUROPEN [Suspect]
     Indication: OROPHARYNGEAL PAIN
     Route: 048
     Dates: start: 20120920, end: 20120920
  5. IBUPROFEN [Suspect]
     Indication: VARICELLA
     Route: 048
     Dates: start: 20120927, end: 20120927
  6. AUGMENTIN (AUGMENTIN) (AMOXICILLIN SODIUM, CLAVULANATE POTASSIUM) [Concomitant]
  7. CALPOL (PARACETAMOL) (PARACETAMOL) [Concomitant]
  8. CELLUVISC (CARMELLOSE SODIUM) (CARMELLOSE SODIUM) [Concomitant]
  9. LACRI-LUBE (LACRI-LUBE) (WOOL FAT, PETROLATUM, MINERAL OIL LIGHT) [Concomitant]
  10. CETIRIZINE HYDROCHLORIDE (CETIRIZINE HYDROCHLORIDE) (CETIRIZINE HYDROCHLORIDE) [Concomitant]
  11. GABAPENTIN (GABAPENTIN) (GABAPENTIN) [Concomitant]
  12. PREDNISOLOLNE (PREDNISOLONE) (PREDNISOLONE) [Concomitant]

REACTIONS (6)
  - Oropharyngeal pain [None]
  - Rash [None]
  - Varicella [None]
  - Medication error [None]
  - Hypersensitivity [None]
  - Toxic epidermal necrolysis [None]
